FAERS Safety Report 7794304-2 (Version None)
Quarter: 2011Q4

REPORT INFORMATION
  Report Type: 
  Country: None (occurrence: None)
  Receive Date: 20111004
  Receipt Date: 20110926
  Transmission Date: 20120403
  Serious: Yes (Hospitalization)
  Sender: FDA-Public Use
  Company Number: IL-UCBSA-041132

PATIENT
  Sex: Female

DRUGS (11)
  1. DIURETICS [Concomitant]
  2. HYPERTENSION AGENT [Concomitant]
  3. STATIN [Concomitant]
  4. LANTUS [Suspect]
     Indication: TYPE 2 DIABETES MELLITUS
     Dosage: 21 IU
  5. APIDRA [Suspect]
     Indication: TYPE 2 DIABETES MELLITUS
     Dosage: 14 IU
  6. CALCIUM ANTAGONIST [Concomitant]
  7. ANGIOTENSIN RECEPTOR BLOCKER [Concomitant]
  8. ACETYLSALICYLIC ACID SRT [Concomitant]
     Dosage: UNKNOWN DOSE
     Dates: start: 20100906
  9. ZAROXOLYN [Suspect]
     Dates: start: 20101201
  10. SAXAGLIPTIN/PLACEBO [Suspect]
     Indication: TYPE 2 DIABETES MELLITUS
     Dates: start: 20100812, end: 20110310
  11. CLOPIDOGREL BISULFATE [Concomitant]
     Dosage: UNKNOWN DOSE
     Dates: start: 20100906

REACTIONS (4)
  - PYREXIA [None]
  - BRONCHITIS [None]
  - HYPONATRAEMIA [None]
  - DYSPNOEA [None]
